FAERS Safety Report 15960618 (Version 1)
Quarter: 2019Q1

REPORT INFORMATION
  Report Type: Spontaneous
  Country: US (occurrence: US)
  Receive Date: 20190122
  Receipt Date: 20190122
  Transmission Date: 20190417
  Serious: No
  Sender: FDA-Public Use
  Company Number: None

PATIENT
  Age: 93 Year
  Sex: Male
  Weight: 70.31 kg

DRUGS (1)
  1. WARFARIN 5 MG [Suspect]
     Active Substance: WARFARIN
     Indication: ATRIAL FIBRILLATION
     Route: 048
     Dates: start: 2004

REACTIONS (2)
  - Product quality issue [None]
  - International normalised ratio increased [None]

NARRATIVE: CASE EVENT DATE: 20181201
